FAERS Safety Report 6419716-0 (Version None)
Quarter: 2009Q4

REPORT INFORMATION
  Report Type: 
  Country: None (occurrence: None)
  Receive Date: 20091013
  Receipt Date: 20090626
  Transmission Date: 20100525
  Serious: No
  Sender: FDA-Public Use
  Company Number: 2009BM000114

PATIENT
  Age: 27 Year
  Sex: Male
  Weight: 99.7 kg

DRUGS (4)
  1. KUVAN [Suspect]
     Indication: PHENYLKETONURIA
     Dosage: 2000 MG;QD;PO; 1000 MG;BID; PO
     Route: 048
     Dates: start: 20080726, end: 20090529
  2. KUVAN [Suspect]
     Indication: PHENYLKETONURIA
     Dosage: 2000 MG;QD;PO; 1000 MG;BID; PO
     Route: 048
     Dates: start: 20090530
  3. PRILOSEC /00661201 (CON.) [Concomitant]
  4. ABILIFY (CON.) [Concomitant]

REACTIONS (1)
  - ABDOMINAL PAIN UPPER [None]
